FAERS Safety Report 24107311 (Version 2)
Quarter: 2024Q3

REPORT INFORMATION
  Report Type: Report from Study
  Country: US (occurrence: US)
  Receive Date: 20240718
  Receipt Date: 20240724
  Transmission Date: 20241016
  Serious: Yes (Life-Threatening)
  Sender: CSL BEHRING
  Company Number: US-BEH-2024175724

PATIENT
  Age: 65 Year
  Sex: Female
  Weight: 97.052 kg

DRUGS (1)
  1. BERINERT [Suspect]
     Active Substance: HUMAN C1-ESTERASE INHIBITOR
     Indication: Hereditary angioedema
     Dosage: 3000 IU/KG
     Route: 058
     Dates: start: 20240709, end: 20240709

REACTIONS (2)
  - Hereditary angioedema [Unknown]
  - Swollen tongue [Unknown]

NARRATIVE: CASE EVENT DATE: 20240709
